FAERS Safety Report 16587791 (Version 3)
Quarter: 2019Q3

REPORT INFORMATION
  Report Type: Spontaneous
  Country: ES (occurrence: ES)
  Receive Date: 20190717
  Receipt Date: 20190729
  Transmission Date: 20191004
  Serious: Yes (Hospitalization, Other)
  Sender: FDA-Public Use
  Company Number: ES-PFIZER INC-2019302389

PATIENT
  Age: 67 Year
  Sex: Male

DRUGS (1)
  1. AMIODARONE HCL [Suspect]
     Active Substance: AMIODARONE HYDROCHLORIDE
     Indication: ATRIAL FIBRILLATION
     Dosage: UNK

REACTIONS (3)
  - Hyperthyroidism [Recovered/Resolved]
  - Atrial fibrillation [Recovered/Resolved]
  - Cardiac failure acute [Recovered/Resolved]
